FAERS Safety Report 15530448 (Version 1)
Quarter: 2018Q4

REPORT INFORMATION
  Report Type: Spontaneous
  Country: CN (occurrence: CN)
  Receive Date: 20181018
  Receipt Date: 20181018
  Transmission Date: 20190205
  Serious: Yes (Hospitalization)
  Sender: FDA-Public Use
  Company Number: CN-PFIZER INC-2018412577

PATIENT
  Age: 70 Year
  Sex: Female
  Weight: 56 kg

DRUGS (7)
  1. UBIDECARENONE [Concomitant]
     Active Substance: UBIDECARENONE
     Indication: THERAPEUTIC PROCEDURE
     Dosage: 10 MG, 3X/DAY
     Route: 048
     Dates: start: 20180628, end: 20180628
  2. BU DA XIU [Concomitant]
     Indication: THERAPEUTIC PROCEDURE
     Dosage: 1 G, 3X/DAY
     Route: 048
     Dates: start: 20180629, end: 20180706
  3. CALTRATE 600+D [Concomitant]
     Indication: THERAPEUTIC PROCEDURE
     Dosage: 1 DF, 1X/DAY
     Route: 048
     Dates: start: 20180628, end: 20180628
  4. LUO GAI QUAN [Concomitant]
     Indication: THERAPEUTIC PROCEDURE
     Dosage: 0.25 UG, 1X/DAY
     Route: 048
     Dates: start: 20180628, end: 20180628
  5. LIPITOR [Suspect]
     Active Substance: ATORVASTATIN CALCIUM
     Indication: THERAPEUTIC PROCEDURE
     Dosage: 10 MG, ONCE A DAY
     Route: 048
     Dates: start: 20180406, end: 20180701
  6. TAI JIA [Suspect]
     Active Substance: CLOPIDOGREL BISULFATE
     Indication: THERAPEUTIC PROCEDURE
     Dosage: 50 MG, 1X/DAY
     Route: 048
     Dates: start: 20170406, end: 20180701
  7. XIN TONG [Concomitant]
     Indication: THERAPEUTIC PROCEDURE
     Dosage: 12 ML, 1X/DAY
     Route: 041
     Dates: start: 20180628, end: 20180728

REACTIONS (3)
  - Rash generalised [Recovered/Resolved]
  - Chest pain [Unknown]
  - Pruritus generalised [Recovered/Resolved]

NARRATIVE: CASE EVENT DATE: 20180701
